FAERS Safety Report 22104719 (Version 1)
Quarter: 2023Q1

REPORT INFORMATION
  Report Type: Spontaneous
  Country: FR (occurrence: FR)
  Receive Date: 20230316
  Receipt Date: 20230316
  Transmission Date: 20230417
  Serious: Yes (Hospitalization, Other)
  Sender: FDA-Public Use
  Company Number: FR-APIL-2308456US

PATIENT
  Sex: Female

DRUGS (3)
  1. MILNACIPRAN [Suspect]
     Active Substance: MILNACIPRAN
     Indication: Major depression
  2. TOPIRAMATE [Suspect]
     Active Substance: TOPIRAMATE
     Indication: Migraine
     Dosage: 50 MG, QD
  3. TOPIRAMATE [Suspect]
     Active Substance: TOPIRAMATE
     Dosage: 15 MG, QD

REACTIONS (1)
  - Obsessive-compulsive symptom [Recovered/Resolved]
